FAERS Safety Report 13757510 (Version 2)
Quarter: 2017Q3

REPORT INFORMATION
  Report Type: Spontaneous
  Country: IT (occurrence: IT)
  Receive Date: 20170717
  Receipt Date: 20170816
  Transmission Date: 20171127
  Serious: Yes (Other)
  Sender: FDA-Public Use
  Company Number: IT-DENTSPLY-2017SCDP000065

PATIENT

DRUGS (1)
  1. LIDOCAINE AND PRILOCAINE [Suspect]
     Active Substance: LIDOCAINE\PRILOCAINE
     Indication: LOCAL ANAESTHESIA
     Dosage: 1 G, OINTMENT
     Route: 061

REACTIONS (3)
  - Methaemoglobinaemia [Recovered/Resolved]
  - Dose calculation error [Unknown]
  - Cyanosis [Recovered/Resolved]
